FAERS Safety Report 7720030-1 (Version None)
Quarter: 2011Q3

REPORT INFORMATION
  Report Type: 
  Country: None (occurrence: None)
  Receive Date: 20110831
  Receipt Date: 20100211
  Transmission Date: 20111222
  Serious: No
  Sender: FDA-Public Use
  Company Number: 2010BI005048

PATIENT
  Age: 46 Year
  Sex: Male

DRUGS (1)
  1. TYSABRI [Suspect]
     Indication: MULTIPLE SCLEROSIS
     Route: 042
     Dates: start: 20090827

REACTIONS (4)
  - DRUG EFFECT DECREASED [None]
  - MEMORY IMPAIRMENT [None]
  - FATIGUE [None]
  - ASTHENIA [None]
